FAERS Safety Report 11323563 (Version 2)
Quarter: 2015Q3

REPORT INFORMATION
  Report Type: Spontaneous
  Country: BR (occurrence: BR)
  Receive Date: 20150730
  Receipt Date: 20150807
  Transmission Date: 20151125
  Serious: Yes (Death, Other)
  Sender: FDA-Public Use
  Company Number: BR-ABBVIE-15P-020-1435150-00

PATIENT
  Age: 3 Year
  Sex: Male

DRUGS (2)
  1. LAMOTRIGINE. [Suspect]
     Active Substance: LAMOTRIGINE
     Indication: SEIZURE
     Dosage: UNKNOWN
     Route: 065
  2. DEPAKENE [Suspect]
     Active Substance: VALPROIC ACID
     Indication: SEIZURE
     Dosage: UNKNOWN
     Route: 065

REACTIONS (20)
  - Cardio-respiratory arrest [Fatal]
  - Bronchopulmonary disease [Fatal]
  - Product use issue [Unknown]
  - Rash maculo-papular [Unknown]
  - Electrolyte imbalance [Unknown]
  - Rhinitis [Unknown]
  - Stevens-Johnson syndrome [Fatal]
  - Dysphagia [Unknown]
  - Sepsis [Fatal]
  - Furuncle [Unknown]
  - Toxic epidermal necrolysis [Unknown]
  - Lip ulceration [Unknown]
  - Skin infection [Unknown]
  - Cough [Unknown]
  - Oxygen saturation decreased [Unknown]
  - Conjunctival hyperaemia [Unknown]
  - Pyrexia [Unknown]
  - Seizure [Unknown]
  - Increased bronchial secretion [Unknown]
  - Hypothermia [Unknown]
